FAERS Safety Report 9993131 (Version 2)
Quarter: 2014Q2

REPORT INFORMATION
  Report Type: Spontaneous
  Country: IT (occurrence: IT)
  Receive Date: 20140310
  Receipt Date: 20140408
  Transmission Date: 20141212
  Serious: Yes (Life-Threatening)
  Sender: FDA-Public Use
  Company Number: IT-ACTAVIS-2014-04023

PATIENT
  Age: 77 Year
  Sex: Female

DRUGS (1)
  1. PACLITAXEL (UNKNOWN) [Suspect]
     Indication: OVARIAN CANCER
     Dosage: 200 MG, CYCLICAL
     Route: 042
     Dates: start: 20140218, end: 20140218

REACTIONS (2)
  - Bronchospasm [Recovered/Resolved]
  - Hyperhidrosis [Recovered/Resolved]
